FAERS Safety Report 8242753-0 (Version None)
Quarter: 2012Q1

REPORT INFORMATION
  Report Type: 
  Country: None (occurrence: None)
  Receive Date: 20120329
  Receipt Date: 20120326
  Transmission Date: 20120608
  Serious: Yes (Hospitalization)
  Sender: FDA-Public Use
  Company Number: IT-BRISTOL-MYERS SQUIBB COMPANY-16448540

PATIENT
  Age: 80 Year
  Sex: Male

DRUGS (9)
  1. COUMADIN [Suspect]
     Indication: INTRACARDIAC THROMBUS
     Dosage: 1 DOSAGE UNIT/DAY,INTERRUPTED:30JAN2012.RESTARTED:15FEB2012.
     Route: 048
     Dates: start: 20120120
  2. VALSARTAN [Concomitant]
  3. BISOPROLOL FUMARATE [Concomitant]
     Dosage: DOSAGE: 1 DOSAGE UNIT
  4. PROSTIDE [Concomitant]
     Dosage: FILM COVERED TABLET (DOSAGE: 1 DOSAGE UNIT).
  5. CLOPIDOGREL + ACETYLSALICYLIC ACID [Concomitant]
  6. CORDARONE [Concomitant]
     Dosage: DOSAGE: 1 DOSAGE UNIT
  7. TAMSULOSIN HCL [Concomitant]
     Dosage: 1 DOSAGE UNIT
  8. ASPIRIN [Concomitant]
     Dosage: GASTRORESISTANT TABLETS (DOSAGE: 1 DOSAGE UNIT).
  9. ATORVASTATIN CALCIUM [Concomitant]
     Dosage: 80MH FILM COVERED TABLET (DOSAGE: 1 DOSAGE UNIT).

REACTIONS (2)
  - INTERNATIONAL NORMALISED RATIO INCREASED [None]
  - ACUTE PULMONARY OEDEMA [None]
